FAERS Safety Report 9349922 (Version 2)
Quarter: 2013Q3

REPORT INFORMATION
  Report Type: Spontaneous
  Country: DE (occurrence: DE)
  Receive Date: 20130614
  Receipt Date: 20130815
  Transmission Date: 20140515
  Serious: Yes (Other)
  Sender: FDA-Public Use
  Company Number: CHPA2013DE009840

PATIENT
  Age: 69 Year
  Sex: Male
  Weight: 67 kg

DRUGS (5)
  1. SCOPODERM TTS [Suspect]
     Indication: SALIVARY HYPERSECRETION
     Dosage: 1 DF USED FOR APPROX. 4 HOURS
     Route: 062
  2. DIOVAN [Concomitant]
     Dosage: 0.5 DF, UNK
  3. ASS [Concomitant]
     Dosage: 0.5 DF, UNK
  4. VENLAFAXIN [Concomitant]
     Dosage: UNK, UNK
  5. RILUTEK [Concomitant]
     Dosage: 1 DF, UNK

REACTIONS (3)
  - Suffocation feeling [Unknown]
  - Aptyalism [Unknown]
  - Off label use [Unknown]
